FAERS Safety Report 4719712-5 (Version None)
Quarter: 2005Q3

REPORT INFORMATION
  Report Type: 
  Country: None (occurrence: None)
  Receive Date: 20050721
  Receipt Date: 20040625
  Transmission Date: 20060218
  Serious: No
  Sender: FDA-Public Use
  Company Number: US-GLAXOSMITHKLINE-A0516128A

PATIENT
  Age: 81 Year
  Sex: Female

DRUGS (7)
  1. AVANDIA [Suspect]
     Dosage: 4MG PER DAY
     Route: 048
     Dates: start: 20040601
  2. LANOXICAPS [Concomitant]
  3. LOPID [Concomitant]
  4. CARTIA XT [Concomitant]
  5. ACCUPRIL [Concomitant]
  6. PRECOSE [Concomitant]
  7. ISOSORBIDE [Concomitant]

REACTIONS (4)
  - BACK PAIN [None]
  - BLOOD GLUCOSE INCREASED [None]
  - JOINT SWELLING [None]
  - MYALGIA [None]
